FAERS Safety Report 4588018-X (Version None)
Quarter: 2005Q1

REPORT INFORMATION
  Report Type: 
  Country: None (occurrence: None)
  Receive Date: 20050217
  Receipt Date: 20041019
  Transmission Date: 20050727
  Serious: Yes (Disabling, Other)
  Sender: FDA-Public Use
  Company Number: 2004S1003130

PATIENT
  Age: 51 Year
  Sex: Female

DRUGS (14)
  1. ACEBUTOLOL HCL [Suspect]
     Indication: HYPERTENSION
     Dosage: 200 MG, BID, ORAL
     Route: 047
     Dates: start: 20041006, end: 20041013
  2. ACEBUTOLOL HCL [Suspect]
     Indication: TACHYCARDIA
     Dosage: 200 MG, BID, ORAL
     Route: 047
     Dates: start: 20041006, end: 20041013
  3. ACETAMINOPHEN AND HYDROCODONE BITARTRATE [Concomitant]
  4. ACETAMINOPHEN [Concomitant]
  5. TIZANIDINE [Concomitant]
  6. ATORVASTATIN CALCIUM [Concomitant]
  7. PANTOPRAZOLE [Concomitant]
  8. CLONAZEPAM [Concomitant]
  9. BACLOFEN [Concomitant]
  10. NAPROXEN [Concomitant]
  11. AMLODIPINE [Concomitant]
  12. BUTARBITAL [Concomitant]
  13. CAFFEINE [Concomitant]
  14. BENAZEPRIL HCL [Concomitant]

REACTIONS (4)
  - ASTHENIA [None]
  - DRUG INEFFECTIVE [None]
  - DYSGEUSIA [None]
  - HEART RATE INCREASED [None]
